FAERS Safety Report 7843311-X (Version None)
Quarter: 2011Q4

REPORT INFORMATION
  Report Type: 
  Country: None (occurrence: None)
  Receive Date: 20111025
  Receipt Date: 20111017
  Transmission Date: 20120403
  Serious: Yes (Other)
  Sender: FDA-Public Use
  Company Number: US-AMGEN-USASP2011053609

PATIENT
  Sex: Male

DRUGS (14)
  1. EPOGEN [Suspect]
     Indication: DIALYSIS
     Dates: start: 20090501
  2. LIPITOR [Concomitant]
  3. IRON [Concomitant]
  4. LISINOPRIL [Concomitant]
  5. LASIX [Concomitant]
  6. AMIODARONE HCL [Concomitant]
  7. COREG [Concomitant]
  8. ARANESP [Suspect]
     Indication: DIALYSIS
     Dosage: 200 MUG, Q2WK
     Route: 058
     Dates: start: 20110401
  9. LORAZEPAM [Concomitant]
  10. ASPIRIN [Concomitant]
  11. REGULAR INSULIN [Concomitant]
  12. CALCIUM ACETATE [Concomitant]
  13. RENVELA [Concomitant]
  14. LANTUS [Concomitant]

REACTIONS (2)
  - HERNIA [None]
  - DRUG INEFFECTIVE [None]
